FAERS Safety Report 4527076-5 (Version None)
Quarter: 2004Q4

REPORT INFORMATION
  Report Type: 
  Country: None (occurrence: None)
  Receive Date: 20041129
  Receipt Date: 20040527
  Transmission Date: 20050328
  Serious: Yes (Death, Hospitalization)
  Sender: FDA-Public Use
  Company Number: USA040260419

PATIENT
  Age: 46 Year
  Sex: Female
  Weight: 77 kg

DRUGS (10)
  1. ZYPREXA [Suspect]
     Indication: AFFECTIVE DISORDER
     Dosage: 5 MG/1 IN THE EVENING
     Dates: start: 20010101
  2. ZYPREXA [Suspect]
     Indication: BIPOLAR DISORDER
     Dosage: 5 MG/1 IN THE EVENING
     Dates: start: 20010101
  3. PROMETHAZINE [Concomitant]
  4. VISTARIL [Concomitant]
  5. BUSPAR [Concomitant]
  6. CELEBREX [Concomitant]
  7. LEXAPRO [Concomitant]
  8. DESYREL [Concomitant]
  9. METHADONE HCL [Concomitant]
  10. SKELAXIN [Concomitant]

REACTIONS (1)
  - NEUROLEPTIC MALIGNANT SYNDROME [None]
